FAERS Safety Report 7340863-3 (Version None)
Quarter: 2011Q1

REPORT INFORMATION
  Report Type: 
  Country: None (occurrence: None)
  Receive Date: 20110309
  Receipt Date: 20110307
  Transmission Date: 20110831
  Serious: Yes (Hospitalization)
  Sender: FDA-Public Use
  Company Number: IT-ELI_LILLY_AND_COMPANY-IT201103002076

PATIENT
  Sex: Male

DRUGS (2)
  1. LANTUS [Concomitant]
     Indication: TYPE 1 DIABETES MELLITUS
     Dosage: 8 D/F, DAILY (1/D)
     Route: 058
     Dates: start: 20080101, end: 20110205
  2. HUMALOG [Suspect]
     Indication: TYPE 1 DIABETES MELLITUS
     Dosage: 13 D/F, DAILY (1/D)
     Route: 058
     Dates: start: 20030101, end: 20110205

REACTIONS (2)
  - HYPOGLYCAEMIC UNCONSCIOUSNESS [None]
  - HYPERHIDROSIS [None]
